FAERS Safety Report 10033111 (Version 2)
Quarter: 2014Q2

REPORT INFORMATION
  Report Type: Spontaneous
  Country: US (occurrence: US)
  Receive Date: 20140324
  Receipt Date: 20140416
  Transmission Date: 20141212
  Serious: Yes (Other)
  Sender: FDA-Public Use
  Company Number: US-ALLERGAN-1405628US

PATIENT
  Age: 51 Year
  Sex: Female

DRUGS (3)
  1. BOTOX COSMETIC [Suspect]
     Indication: SKIN WRINKLING
     Dosage: 42 UNITS, SINGLE
     Route: 030
     Dates: start: 20140310, end: 20140310
  2. BOTOX COSMETIC [Suspect]
     Indication: SKIN WRINKLING
  3. BOTOX COSMETIC [Suspect]
     Indication: SKIN WRINKLING

REACTIONS (6)
  - Chest pain [Unknown]
  - Swelling face [Not Recovered/Not Resolved]
  - Contusion [Unknown]
  - Tension [Unknown]
  - Incorrect product storage [Unknown]
  - Paraesthesia [Unknown]
